FAERS Safety Report 12801124 (Version 2)
Quarter: 2016Q4

REPORT INFORMATION
  Report Type: Spontaneous
  Country: JP (occurrence: JP)
  Receive Date: 20161003
  Receipt Date: 20161007
  Transmission Date: 20170207
  Serious: Yes (Other)
  Sender: FDA-Public Use
  Company Number: JP-ROCHE-1831313

PATIENT
  Age: 69 Year
  Sex: Male
  Weight: 65 kg

DRUGS (10)
  1. AVASTIN [Suspect]
     Active Substance: BEVACIZUMAB
     Indication: COLON CANCER
     Dosage: 4TH CYCLE: 17/MAY/2016
     Route: 041
     Dates: start: 20160418
  2. MAGMITT [Concomitant]
     Active Substance: MAGNESIUM OXIDE
     Route: 048
     Dates: start: 20160125
  3. DECADRON [Concomitant]
     Active Substance: DEXAMETHASONE
     Indication: COLON CANCER
     Route: 041
     Dates: start: 20160318
  4. IRINOTECAN HYDROCHLORIDE. [Concomitant]
     Active Substance: IRINOTECAN HYDROCHLORIDE
     Indication: COLON CANCER
     Route: 041
     Dates: start: 20160318
  5. ONDANSETRON [Concomitant]
     Active Substance: ONDANSETRON
     Indication: COLON CANCER
     Dosage: REPORTED AS ZOFRAN ZYDIS
     Route: 048
     Dates: start: 20160318
  6. FLUOROURACIL. [Concomitant]
     Active Substance: FLUOROURACIL
     Indication: COLON CANCER
     Route: 040
     Dates: start: 20160318
  7. ZOFRAN ZIDIS [Concomitant]
     Indication: COLON CANCER
     Dosage: ZOFRAN ZYDIS
     Route: 048
     Dates: start: 20160318
  8. URSO [Concomitant]
     Active Substance: URSODIOL
     Route: 048
     Dates: start: 20160321
  9. FLUOROURACIL. [Concomitant]
     Active Substance: FLUOROURACIL
     Indication: COLON CANCER
     Route: 041
     Dates: start: 20160318
  10. LEVOFOLINATE [Concomitant]
     Active Substance: LEVOLEUCOVORIN CALCIUM
     Indication: COLON CANCER
     Route: 041
     Dates: start: 20160318

REACTIONS (3)
  - Large intestine perforation [Recovered/Resolved with Sequelae]
  - Ileus [Unknown]
  - Tumour necrosis [Unknown]

NARRATIVE: CASE EVENT DATE: 20160524
